FAERS Safety Report 7544096-7 (Version None)
Quarter: 2011Q2

REPORT INFORMATION
  Report Type: 
  Country: None (occurrence: None)
  Receive Date: 20110613
  Receipt Date: 20060123
  Transmission Date: 20111010
  Serious: Yes (Death, Hospitalization)
  Sender: FDA-Public Use
  Company Number: PHHO2005PH18090

PATIENT
  Sex: Male

DRUGS (1)
  1. DIOVAN [Suspect]
     Dosage: 160 MG, QD
     Route: 048
     Dates: start: 20050322, end: 20051012

REACTIONS (1)
  - MYOCARDIAL INFARCTION [None]
